FAERS Safety Report 13385100 (Version 1)
Quarter: 2017Q1

REPORT INFORMATION
  Report Type: Spontaneous
  Country: CA (occurrence: CA)
  Receive Date: 20170329
  Receipt Date: 20170329
  Transmission Date: 20170429
  Serious: Yes (Other)
  Sender: FDA-Public Use
  Company Number: CA-TEVA-754463ACC

PATIENT
  Sex: Male
  Weight: 32 kg

DRUGS (4)
  1. CISPLATIN INJECTION [Suspect]
     Active Substance: CISPLATIN
     Indication: HEPATOBLASTOMA
     Route: 042
  2. DOXORUBICIN HYDROCHLORIDE INJECTION [Suspect]
     Active Substance: DOXORUBICIN HYDROCHLORIDE
     Indication: HEPATOBLASTOMA
     Route: 042
  3. FLUOROURACIL INJECTION USP [Suspect]
     Active Substance: FLUOROURACIL
     Indication: HEPATOBLASTOMA
     Route: 042
  4. VINCRISTINE SULFATE INJECTION USP [Concomitant]
     Active Substance: VINCRISTINE SULFATE
     Indication: HEPATOBLASTOMA

REACTIONS (1)
  - Cardiotoxicity [Unknown]
